FAERS Safety Report 18077189 (Version 1)
Quarter: 2020Q3

REPORT INFORMATION
  Report Type: Report from Study
  Country: US (occurrence: US)
  Receive Date: 20200727
  Receipt Date: 20200727
  Transmission Date: 20201103
  Serious: Yes (Hospitalization)
  Sender: FDA-Public Use
  Company Number: US-ACTELION-A-NJ2019-187237

PATIENT
  Sex: Male
  Weight: 99.32 kg

DRUGS (6)
  1. AMLODIPINE [Concomitant]
     Active Substance: AMLODIPINE BESYLATE
  2. TADALAFIL. [Concomitant]
     Active Substance: TADALAFIL
  3. OPSUMIT [Suspect]
     Active Substance: MACITENTAN
     Indication: PULMONARY ARTERIAL HYPERTENSION
     Dosage: 10 MG, QD
     Route: 048
  4. COUMADIN [Concomitant]
     Active Substance: WARFARIN SODIUM
  5. REMODULIN [Concomitant]
     Active Substance: TREPROSTINIL
     Route: 042
  6. ADCIRCA [Concomitant]
     Active Substance: TADALAFIL

REACTIONS (6)
  - Adverse drug reaction [Unknown]
  - Catheter site haemorrhage [Recovered/Resolved]
  - Emotional disorder [Recovering/Resolving]
  - Fall [Recovered/Resolved]
  - International normalised ratio increased [Unknown]
  - Bronchitis [Recovering/Resolving]
